FAERS Safety Report 5713014-6 (Version None)
Quarter: 2008Q2

REPORT INFORMATION
  Report Type: 
  Country: None (occurrence: None)
  Receive Date: 20080422
  Receipt Date: 20080410
  Transmission Date: 20081010
  Serious: Yes (Other)
  Sender: FDA-Public Use
  Company Number: JP-ROCHE-554136

PATIENT
  Sex: Female
  Weight: 18 kg

DRUGS (6)
  1. TAMIFLU [Suspect]
     Dosage: OTHER INDICATION: INFLUENZA B VIRUS INFECTION
     Route: 048
     Dates: start: 20080308, end: 20080310
  2. CALONAL [Concomitant]
     Dosage: TAKEN AS NEEDED; FORM: FINE GRANULES
     Route: 048
     Dates: start: 20080308
  3. PRIMPERAN INJ [Concomitant]
     Route: 048
     Dates: start: 20080308, end: 20080309
  4. INOLIN [Concomitant]
     Route: 048
     Dates: start: 20080310, end: 20080317
  5. MUCODYNE [Concomitant]
     Route: 048
     Dates: start: 20080310, end: 20080317
  6. ALIMEZINE [Concomitant]
     Route: 048
     Dates: start: 20080310, end: 20080317

REACTIONS (1)
  - ABNORMAL BEHAVIOUR [None]
